FAERS Safety Report 13790011 (Version 2)
Quarter: 2017Q3

REPORT INFORMATION
  Report Type: Spontaneous
  Country: US (occurrence: US)
  Receive Date: 20170725
  Receipt Date: 20170918
  Transmission Date: 20171127
  Serious: No
  Sender: FDA-Public Use
  Company Number: US-PFIZER INC-2017320390

PATIENT
  Age: 70 Year
  Sex: Female

DRUGS (3)
  1. DULOXETINE. [Interacting]
     Active Substance: DULOXETINE
     Indication: FIBROMYALGIA
     Dosage: 1 DF, DAILY (1 - 50 MG TAB, TRIAL PERIOD 2 WEEKS)
  2. XELJANZ [Interacting]
     Active Substance: TOFACITINIB CITRATE
     Dosage: 10 MG, 2X/DAY
  3. XELJANZ [Suspect]
     Active Substance: TOFACITINIB CITRATE
     Indication: RHEUMATOID ARTHRITIS
     Dosage: 5 MG, 2X/DAY
     Route: 048
     Dates: start: 2013

REACTIONS (2)
  - Drug interaction [Recovered/Resolved]
  - Alopecia [Recovered/Resolved]
